FAERS Safety Report 15009244 (Version 2)
Quarter: 2018Q2

REPORT INFORMATION
  Report Type: Spontaneous
  Country: AU (occurrence: AU)
  Receive Date: 20180614
  Receipt Date: 20180626
  Transmission Date: 20180711
  Serious: Yes (Other)
  Sender: FDA-Public Use
  Company Number: AU-ORION CORPORATION ORION PHARMA-TREX2018-1378

PATIENT
  Age: 62 Year
  Sex: Male
  Weight: 69 kg

DRUGS (23)
  1. ELOCON [Concomitant]
     Active Substance: MOMETASONE FUROATE
     Indication: SKIN DISORDER
     Route: 065
  2. GLUCOSAMINE [Concomitant]
     Active Substance: GLUCOSAMINE
     Indication: ARTHROPATHY
     Dosage: EVENING
     Route: 065
  3. PHYSIOTENS [Concomitant]
     Active Substance: MOXONIDINE
     Indication: BLOOD PRESSURE MEASUREMENT
     Dosage: EVENING
     Route: 065
  4. MICARDIS [Concomitant]
     Active Substance: TELMISARTAN
     Indication: BLOOD PRESSURE MEASUREMENT
     Dosage: IN THE EVENING
     Route: 065
  5. CRESTOR [Concomitant]
     Active Substance: ROSUVASTATIN CALCIUM
     Indication: BLOOD CHOLESTEROL
     Dosage: EVENING
     Route: 065
  6. FEXOFENADINE [Concomitant]
     Active Substance: FEXOFENADINE\FEXOFENADINE HYDROCHLORIDE
     Indication: SEASONAL ALLERGY
  7. DAKTAGOLD [Concomitant]
     Active Substance: KETOCONAZOLE
     Indication: TINEA INFECTION
     Route: 065
  8. METHOTREXATE (METHOTREXATE SODIUM) [Suspect]
     Active Substance: METHOTREXATE SODIUM
     Indication: NEURODERMATITIS
     Dosage: (TUESDAYS)
     Route: 048
     Dates: start: 20060330
  9. PALEXIA [Concomitant]
     Active Substance: TAPENTADOL HYDROCHLORIDE
     Route: 065
  10. TARGIN [Concomitant]
     Active Substance: NALOXONE HYDROCHLORIDE\OXYCODONE HYDROCHLORIDE
     Route: 065
  11. NOTEN [Concomitant]
     Active Substance: ATENOLOL
     Indication: BLOOD PRESSURE MEASUREMENT
     Dosage: MORNING 0.5 X 50 MG, EVENING 50 MG
     Route: 065
  12. METFORMIN [Concomitant]
     Active Substance: METFORMIN HYDROCHLORIDE
     Indication: DIABETES MELLITUS
     Dosage: EVENING
     Route: 065
  13. FOLIC ACID. [Concomitant]
     Active Substance: FOLIC ACID
     Indication: PROPHYLAXIS
     Dosage: MORNING; WEEKLY ON THURSDAY
     Route: 065
  14. ENDONE [Concomitant]
     Active Substance: OXYCODONE HYDROCHLORIDE
     Route: 065
  15. TRITACE [Concomitant]
     Active Substance: RAMIPRIL
     Indication: BLOOD PRESSURE MEASUREMENT
     Dosage: IN THE MORNING
     Route: 065
  16. PHOSPHATE-SANDOZ [Concomitant]
     Active Substance: SODIUM PHOSPHATE, MONOBASIC, ANHYDROUS
     Indication: BONE DISORDER
     Dosage: MORNING 500 MG, EVENING 500 MG
     Route: 065
  17. DIPROSONE OV [Concomitant]
     Indication: SKIN DISORDER
     Route: 065
  18. CELESTONE M [Concomitant]
     Indication: SKIN DISORDER
     Route: 065
  19. BREO ELLIPTA [Concomitant]
     Active Substance: FLUTICASONE FUROATE\VILANTEROL TRIFENATATE
     Indication: ASTHMA
     Dosage: MORNING
     Route: 065
  20. CRESTOR [Concomitant]
     Active Substance: ROSUVASTATIN CALCIUM
     Indication: BLOOD TRIGLYCERIDES
  21. FEXOFENADINE [Concomitant]
     Active Substance: FEXOFENADINE\FEXOFENADINE HYDROCHLORIDE
     Indication: SKIN DISORDER
     Dosage: MORNING 180 MG AND EVENING 180 MG
     Route: 065
  22. ASPIRIN. [Concomitant]
     Active Substance: ASPIRIN
     Indication: BLOOD DISORDER
     Dosage: MORNING
     Route: 065
  23. DESOWEN [Concomitant]
     Active Substance: DESONIDE
     Indication: SKIN DISORDER
     Route: 065

REACTIONS (8)
  - Transient ischaemic attack [Unknown]
  - Tricuspid valve disease [Unknown]
  - Drug ineffective [Recovering/Resolving]
  - Asthma [Unknown]
  - Anal fistula [Unknown]
  - Drug dose omission [Unknown]
  - Product quality issue [Unknown]
  - Anal abscess [Unknown]

NARRATIVE: CASE EVENT DATE: 20060814
